FAERS Safety Report 18739337 (Version 1)
Quarter: 2021Q1

REPORT INFORMATION
  Report Type: Spontaneous
  Country: DE (occurrence: DE)
  Receive Date: 20210114
  Receipt Date: 20210114
  Transmission Date: 20210419
  Serious: Yes (Other)
  Sender: FDA-Public Use
  Company Number: DE-TEVA-2021-DE-1867656

PATIENT
  Age: 51 Year
  Sex: Female

DRUGS (2)
  1. EFFENTORA BUCCALTABLETTEN [Suspect]
     Active Substance: FENTANYL CITRATE
     Dosage: FOR A VERY LONG TIME
     Route: 048
  2. EFFENTORA BUCCALTABLETTEN [Suspect]
     Active Substance: FENTANYL CITRATE
     Indication: PRODUCT USED FOR UNKNOWN INDICATION
     Dosage: FOR A VERY LONG TIME
     Route: 048

REACTIONS (3)
  - Product use in unapproved indication [Unknown]
  - Oesophageal haemorrhage [Unknown]
  - Reaction to excipient [Unknown]
